FAERS Safety Report 9406820 (Version 2)
Quarter: 2013Q4

REPORT INFORMATION
  Report Type: Spontaneous
  Country: FR (occurrence: FR)
  Receive Date: 20130718
  Receipt Date: 20131003
  Transmission Date: 20140711
  Serious: Yes (Hospitalization)
  Sender: FDA-Public Use
  Company Number: PHHY2013FR075108

PATIENT
  Age: 75 Year
  Sex: Male

DRUGS (5)
  1. COTAREG [Suspect]
     Dates: end: 201304
  2. PROCORALAN [Suspect]
     Dates: end: 201304
  3. PRAVADUAL [Suspect]
     Dates: end: 201304
  4. OLMETEC [Suspect]
     Dates: end: 201306
  5. DUOPLAVIN [Suspect]
     Dosage: UNK
     Dates: end: 201306

REACTIONS (3)
  - Face oedema [Recovered/Resolved]
  - Eczema [Recovered/Resolved]
  - Toxic skin eruption [Recovered/Resolved]
